FAERS Safety Report 14923494 (Version 1)
Quarter: 2018Q2

REPORT INFORMATION
  Report Type: Spontaneous
  Country: GB (occurrence: GB)
  Receive Date: 20180522
  Receipt Date: 20180522
  Transmission Date: 20180711
  Serious: Yes (Congenital Anomaly)
  Sender: FDA-Public Use
  Company Number: GB-JNJFOC-20180520460

PATIENT
  Sex: Male

DRUGS (3)
  1. QUETIAPINE. [Concomitant]
     Active Substance: QUETIAPINE
     Route: 064
  2. METHYLPHENIDATE HYDROCHLORIDE. [Suspect]
     Active Substance: METHYLPHENIDATE HYDROCHLORIDE
     Indication: ATTENTION DEFICIT/HYPERACTIVITY DISORDER
     Route: 064
     Dates: start: 20150903
  3. FLUOXETINE [Concomitant]
     Active Substance: FLUOXETINE HYDROCHLORIDE
     Route: 064

REACTIONS (6)
  - Pulmonary artery atresia [Unknown]
  - Foetal exposure during pregnancy [Unknown]
  - Aplasia cutis congenita [Unknown]
  - Congenital arterial malformation [Unknown]
  - Congenital pulmonary artery anomaly [Unknown]
  - Ventricular septal defect [Unknown]
